FAERS Safety Report 23250738 (Version 1)
Quarter: 2023Q4

REPORT INFORMATION
  Report Type: Spontaneous
  Country: TH (occurrence: TH)
  Receive Date: 20231201
  Receipt Date: 20231201
  Transmission Date: 20240109
  Serious: Yes (Other)
  Sender: FDA-Public Use
  Company Number: TH-002147023-NVSC2023TH251654

PATIENT
  Age: 64 Year
  Sex: Male

DRUGS (10)
  1. DABRAFENIB [Suspect]
     Active Substance: DABRAFENIB
     Indication: BRAF V600E mutation positive
     Dosage: 150 MG, BID
     Route: 065
     Dates: start: 20230118
  2. DABRAFENIB [Suspect]
     Active Substance: DABRAFENIB
     Indication: Non-small cell lung cancer
  3. DABRAFENIB [Suspect]
     Active Substance: DABRAFENIB
     Indication: Metastases to lung
  4. DABRAFENIB [Suspect]
     Active Substance: DABRAFENIB
     Indication: Metastases to pleura
  5. DABRAFENIB [Suspect]
     Active Substance: DABRAFENIB
     Indication: Metastases to adrenals
  6. TRAMETINIB [Suspect]
     Active Substance: TRAMETINIB
     Indication: BRAF V600E mutation positive
     Dosage: 2 MG, QD
     Route: 065
     Dates: start: 20230118
  7. TRAMETINIB [Suspect]
     Active Substance: TRAMETINIB
     Indication: Non-small cell lung cancer
  8. TRAMETINIB [Suspect]
     Active Substance: TRAMETINIB
     Indication: Metastases to lung
  9. TRAMETINIB [Suspect]
     Active Substance: TRAMETINIB
     Indication: Metastases to pleura
  10. TRAMETINIB [Suspect]
     Active Substance: TRAMETINIB
     Indication: Metastases to adrenals

REACTIONS (5)
  - Small cell carcinoma [Unknown]
  - Cancer with a high tumour mutational burden [Unknown]
  - Disease progression [Unknown]
  - Computerised tomogram abnormal [Unknown]
  - Therapeutic product effect incomplete [Unknown]

NARRATIVE: CASE EVENT DATE: 20230717
